FAERS Safety Report 7604448-3 (Version None)
Quarter: 2011Q3

REPORT INFORMATION
  Report Type: 
  Country: None (occurrence: None)
  Receive Date: 20110712
  Receipt Date: 20110704
  Transmission Date: 20111222
  Serious: Yes (Hospitalization, Other)
  Sender: FDA-Public Use
  Company Number: PHHY2011GB59249

PATIENT
  Age: 79 Year
  Sex: Female

DRUGS (5)
  1. FLUOXETINE [Suspect]
     Dosage: 60 MG, DAILY
  2. DIAZEPAM [Concomitant]
     Dosage: 2 MG, TID
  3. FLUOXETINE [Suspect]
     Indication: DEPRESSION
     Dosage: 40 MG, DAILY
  4. RANITIDINE [Concomitant]
     Dosage: 150 MG, BID
  5. LEVOTHYROXINE SODIUM [Concomitant]
     Dosage: 100 UG, QD

REACTIONS (8)
  - DIVERTICULUM [None]
  - ABDOMINAL PAIN [None]
  - DRUG INEFFECTIVE [None]
  - MELAENA [None]
  - OESOPHAGITIS [None]
  - HAEMOGLOBIN DECREASED [None]
  - VOMITING [None]
  - UPPER GASTROINTESTINAL HAEMORRHAGE [None]
